FAERS Safety Report 4536724-5 (Version None)
Quarter: 2004Q4

REPORT INFORMATION
  Report Type: 
  Country: None (occurrence: None)
  Receive Date: 20041222
  Receipt Date: 20041222
  Transmission Date: 20050328
  Serious: Yes (Other)
  Sender: FDA-Public Use
  Company Number: None

PATIENT
  Sex: Male
  Weight: 87.5442 kg

DRUGS (3)
  1. PROZAC [Suspect]
     Indication: MAJOR DEPRESSION
     Dosage: 5 PO QD
     Route: 048
     Dates: start: 20040701
  2. KLONOPIN [Concomitant]
  3. ZYPREXA [Concomitant]

REACTIONS (3)
  - DIARRHOEA [None]
  - NAUSEA [None]
  - PHARMACEUTICAL PRODUCT COMPLAINT [None]
